FAERS Safety Report 4342184-X (Version None)
Quarter: 2004Q1

REPORT INFORMATION
  Report Type: 
  Country: None (occurrence: None)
  Receive Date: 20040329
  Receipt Date: 20031204
  Transmission Date: 20041129
  Serious: No
  Sender: FDA-Public Use
  Company Number: USA031254022

PATIENT
  Sex: Female

DRUGS (2)
  1. STRATTERA [Suspect]
     Indication: ATTENTION DEFICIT/HYPERACTIVITY DISORDER
     Dosage: 40 MG/DAY
     Dates: start: 20031203
  2. LEVOXYL [Concomitant]

REACTIONS (5)
  - DRY THROAT [None]
  - HYPERSENSITIVITY [None]
  - RASH PAPULAR [None]
  - THROAT TIGHTNESS [None]
  - TONGUE DISORDER [None]
